FAERS Safety Report 8941919 (Version 3)
Quarter: 2013Q1

REPORT INFORMATION
  Report Type: Report from Study
  Country: US (occurrence: US)
  Receive Date: 20121130
  Receipt Date: 20130306
  Transmission Date: 20140127
  Serious: No
  Sender: FDA-Public Use
  Company Number: US-VERTEX PHARMACEUTICAL INC.-2012-025278

PATIENT
  Age: 55 Year
  Sex: Male

DRUGS (3)
  1. VX-950 (TELAPREVIR) [Suspect]
     Indication: HEPATITIS C
     Dosage: 750 MG, TID
     Route: 048
     Dates: start: 20121113, end: 20130129
  2. PEGASYS [Suspect]
     Indication: HEPATITIS C
     Dosage: 180 ?G, QW
     Route: 058
     Dates: start: 20121113, end: 20130129
  3. RIBASPHERE [Suspect]
     Indication: HEPATITIS C
     Dosage: 600MG AM, 400MG PM
     Route: 048
     Dates: start: 20121113, end: 20130129

REACTIONS (7)
  - Chills [Unknown]
  - Fatigue [Unknown]
  - Anorectal discomfort [Unknown]
  - Rash generalised [Unknown]
  - Blister [Unknown]
  - Skin burning sensation [Unknown]
  - Pruritus [Unknown]
